FAERS Safety Report 24555090 (Version 1)
Quarter: 2024Q4

REPORT INFORMATION
  Report Type: Report from Study
  Country: ES (occurrence: ES)
  Receive Date: 20241028
  Receipt Date: 20241028
  Transmission Date: 20250115
  Serious: Yes (Other)
  Sender: JOHNSON AND JOHNSON
  Company Number: ES-JNJFOC-20241063399

PATIENT
  Sex: Male

DRUGS (2)
  1. ERLEADA [Suspect]
     Active Substance: APALUTAMIDE
     Indication: Hormone-dependent prostate cancer
     Route: 048
  2. ABIRATERONE ACETATE [Suspect]
     Active Substance: ABIRATERONE ACETATE
     Indication: Hormone-dependent prostate cancer
     Route: 048

REACTIONS (10)
  - Prostate cancer metastatic [Unknown]
  - Hypertriglyceridaemia [Unknown]
  - Asthenia [Unknown]
  - Hypertension [Unknown]
  - Fall [Unknown]
  - Toxicity to various agents [Unknown]
  - Hypercholesterolaemia [Unknown]
  - Skin reaction [Unknown]
  - Transaminases increased [Unknown]
  - Pain in extremity [Unknown]
